FAERS Safety Report 16633036 (Version 1)
Quarter: 2019Q3

REPORT INFORMATION
  Report Type: Spontaneous
  Country: BR (occurrence: BR)
  Receive Date: 20190725
  Receipt Date: 20190725
  Transmission Date: 20191004
  Serious: Yes (Hospitalization)
  Sender: FDA-Public Use
  Company Number: PHHY2019BR171084

PATIENT
  Age: 72 Year
  Sex: Male

DRUGS (1)
  1. TOBREX [Suspect]
     Active Substance: TOBRAMYCIN
     Indication: PRODUCT USED FOR UNKNOWN INDICATION
     Dosage: UNK
     Route: 065

REACTIONS (9)
  - Eye swelling [Recovering/Resolving]
  - Rash macular [Recovering/Resolving]
  - Madarosis [Not Recovered/Not Resolved]
  - Varicella [Not Recovered/Not Resolved]
  - Mass [Recovering/Resolving]
  - Ocular hyperaemia [Recovering/Resolving]
  - Food poisoning [Not Recovered/Not Resolved]
  - Malaise [Not Recovered/Not Resolved]
  - Swelling face [Not Recovered/Not Resolved]

NARRATIVE: CASE EVENT DATE: 20190712
